FAERS Safety Report 23831542 (Version 2)
Quarter: 2024Q2

REPORT INFORMATION
  Report Type: Spontaneous
  Country: EG (occurrence: EG)
  Receive Date: 20240508
  Receipt Date: 20240509
  Transmission Date: 20240715
  Serious: Yes (Life-Threatening, Hospitalization)
  Sender: FDA-Public Use
  Company Number: EG-009507513-2405EGY001534

PATIENT
  Sex: Female

DRUGS (3)
  1. IMIPENEM AND CILASTATIN [Suspect]
     Active Substance: CILASTATIN SODIUM\IMIPENEM
     Indication: Lower respiratory tract infection
     Dosage: 1 GRAM, 3 TIMES DAILY (Q3D)
     Route: 042
     Dates: end: 20240319
  2. PARAMOL [PARACETAMOL] [Concomitant]
  3. PROTOFIX [Concomitant]
     Dosage: UNK
     Dates: end: 20240319

REACTIONS (2)
  - Brief resolved unexplained event [Recovered/Resolved]
  - Hospitalisation [Recovered/Resolved]
